FAERS Safety Report 10174687 (Version 1)
Quarter: 2014Q2

REPORT INFORMATION
  Report Type: Spontaneous
  Country: US (occurrence: None)
  Receive Date: 20140514
  Receipt Date: 20140514
  Transmission Date: 20141212
  Serious: Yes (Disabling)
  Sender: FDA-Public Use
  Company Number: None

PATIENT
  Age: 59 Year
  Sex: Female
  Weight: 47.63 kg

DRUGS (3)
  1. COUMADIN [Suspect]
     Indication: INTESTINAL ISCHAEMIA
     Dosage: 1 PILL
     Route: 048
     Dates: start: 20120728, end: 20130808
  2. COUMADIN [Suspect]
     Indication: STENT PLACEMENT
     Dosage: 1 PILL
     Route: 048
     Dates: start: 20120728, end: 20130808
  3. COUMADIN [Suspect]
     Dosage: 1 PILL
     Route: 048
     Dates: start: 20120728, end: 20130808

REACTIONS (4)
  - Paralysis [None]
  - Spinal haematoma [None]
  - Spinal fracture [None]
  - Haemorrhage [None]
